FAERS Safety Report 11365225 (Version 2)
Quarter: 2015Q4

REPORT INFORMATION
  Report Type: Spontaneous
  Country: US (occurrence: US)
  Receive Date: 20150811
  Receipt Date: 20151013
  Transmission Date: 20160304
  Serious: No
  Sender: FDA-Public Use
  Company Number: US-009507513-1508USA001178

PATIENT
  Age: 23 Year
  Sex: Female
  Weight: 108.39 kg

DRUGS (1)
  1. NEXPLANON [Suspect]
     Active Substance: ETONOGESTREL
     Dosage: UNK
     Route: 059
     Dates: start: 201412, end: 2015

REACTIONS (2)
  - Device kink [Recovered/Resolved]
  - Implant site hypoaesthesia [Recovering/Resolving]

NARRATIVE: CASE EVENT DATE: 20150727
